FAERS Safety Report 14638798 (Version 1)
Quarter: 2018Q1

REPORT INFORMATION
  Report Type: Spontaneous
  Country: US (occurrence: US)
  Receive Date: 20180315
  Receipt Date: 20180315
  Transmission Date: 20180509
  Serious: Yes (Other)
  Sender: FDA-Public Use
  Company Number: US-B.I. PHARMACEUTICALS,INC./RIDGEFIELD-2018-BI-014243

PATIENT
  Age: 64 Year
  Sex: Male

DRUGS (12)
  1. FLUOXETINE [Concomitant]
     Active Substance: FLUOXETINE HYDROCHLORIDE
     Indication: DEPRESSION
     Dosage: ONCE DAILY;  FORM STRENGTH: 40MG; FORMULATION: CAPSULE
     Route: 048
  2. PANTOPRAZOLE [Concomitant]
     Active Substance: PANTOPRAZOLE
     Indication: IMPAIRED GASTRIC EMPTYING
     Dosage: EVERY OTHER DAY;  FORM STRENGTH: 40MG; FORMULATION: CAPLET
     Route: 048
     Dates: start: 2007
  3. SPIRIVA [Suspect]
     Active Substance: TIOTROPIUM BROMIDE MONOHYDRATE
     Indication: EMPHYSEMA
     Route: 055
     Dates: start: 2017
  4. LOSARTAN. [Concomitant]
     Active Substance: LOSARTAN
     Indication: HYPERTENSION
     Dosage: ONCE DAILY;  FORM STRENGTH: 100MG; FORMULATION: TABLET
     Route: 048
     Dates: start: 2013
  5. ASPIRIN. [Concomitant]
     Active Substance: ASPIRIN
     Indication: MYOCARDIAL INFARCTION
  6. ASPIRIN. [Concomitant]
     Active Substance: ASPIRIN
     Indication: PROPHYLAXIS
     Dosage: ONCE DAILY;  FORM STRENGTH: 81MG; FORMULATION: TABLET
     Route: 048
     Dates: start: 2015
  7. ATORVASTATIN [Concomitant]
     Active Substance: ATORVASTATIN
     Indication: BLOOD CHOLESTEROL INCREASED
     Dosage: ONCE DAILY;  FORM STRENGTH: 10MG; FORMULATION: TABLET
     Route: 048
     Dates: start: 2015
  8. TIZANIDINE. [Concomitant]
     Active Substance: TIZANIDINE
     Indication: HEADACHE
     Dosage: ONCE DAILY;  FORM STRENGTH: 2MG; FORMULATION: TABLET
     Route: 048
     Dates: start: 2017
  9. XANAX [Concomitant]
     Active Substance: ALPRAZOLAM
     Indication: PANIC DISORDER
  10. FLUOXETINE [Concomitant]
     Active Substance: FLUOXETINE HYDROCHLORIDE
     Indication: ANXIETY
  11. XANAX [Concomitant]
     Active Substance: ALPRAZOLAM
     Indication: ANXIETY
     Dosage: 3 TIMES DAILY;  FORM STRENGTH: 0.5MG; FORMULATION: TABLET
     Route: 048
     Dates: start: 2007
  12. TRAZODONE [Concomitant]
     Active Substance: TRAZODONE HYDROCHLORIDE
     Indication: SLEEP DISORDER
     Dosage: ONCE DAILY AT NIGHT;  FORM STRENGTH: 50MG; FORMULATION: TABLET
     Route: 048
     Dates: start: 2016

REACTIONS (1)
  - Bladder cancer [Unknown]

NARRATIVE: CASE EVENT DATE: 201710
